FAERS Safety Report 5272769-8 (Version None)
Quarter: 2007Q1

REPORT INFORMATION
  Report Type: 
  Country: None (occurrence: None)
  Receive Date: 20070322
  Receipt Date: 20070316
  Transmission Date: 20070707
  Serious: Yes (Hospitalization, Disabling)
  Sender: FDA-Public Use
  Company Number: JP-JPN-A200700943

PATIENT
  Age: 55 Year
  Sex: Male

DRUGS (4)
  1. PAXIL [Suspect]
     Indication: DEPRESSION
     Route: 048
     Dates: start: 20051207, end: 20061230
  2. DOGMATYL [Suspect]
     Indication: DEPRESSION
     Dosage: 50MG PER DAY
     Route: 048
     Dates: start: 20060131, end: 20061125
  3. SOLANAX [Concomitant]
     Indication: DEPRESSION
     Route: 048
     Dates: start: 20050830, end: 20070127
  4. ROHYPNOL [Concomitant]
     Indication: DEPRESSION
     Dosage: 1MG PER DAY
     Route: 048
     Dates: start: 20050830, end: 20070127

REACTIONS (11)
  - ABNORMAL BEHAVIOUR [None]
  - DIZZINESS [None]
  - ELEVATED MOOD [None]
  - FAMILY STRESS [None]
  - INSOMNIA [None]
  - IRRITABILITY [None]
  - MANIA [None]
  - MENTAL IMPAIRMENT [None]
  - NAUSEA [None]
  - PERSONALITY CHANGE [None]
  - TREATMENT NONCOMPLIANCE [None]
